FAERS Safety Report 11033996 (Version 2)
Quarter: 2015Q2

REPORT INFORMATION
  Report Type: Spontaneous
  Country: US (occurrence: US)
  Receive Date: 20150415
  Receipt Date: 20150525
  Transmission Date: 20150821
  Serious: No
  Sender: FDA-Public Use
  Company Number: US-JNJFOC-20130620699

PATIENT
  Sex: Male
  Weight: 92.08 kg

DRUGS (9)
  1. LYRICA [Concomitant]
     Active Substance: PREGABALIN
     Indication: NEUROPATHY PERIPHERAL
     Route: 048
  2. XARELTO [Suspect]
     Active Substance: RIVAROXABAN
     Indication: CEREBROVASCULAR ACCIDENT PROPHYLAXIS
     Route: 048
     Dates: start: 201304
  3. PLAQUENIL [Concomitant]
     Active Substance: HYDROXYCHLOROQUINE SULFATE
     Indication: RHEUMATOID ARTHRITIS
     Route: 048
  4. ULORIC [Concomitant]
     Active Substance: FEBUXOSTAT
     Indication: GOUT
     Route: 048
  5. SPIRONOLACTONE. [Concomitant]
     Active Substance: SPIRONOLACTONE
     Indication: FLUID RETENTION
     Route: 048
  6. NADOLOL. [Concomitant]
     Active Substance: NADOLOL
     Indication: ARRHYTHMIA
     Route: 048
  7. PREDNISONE. [Concomitant]
     Active Substance: PREDNISONE
     Indication: GOUT
     Route: 048
  8. XARELTO [Suspect]
     Active Substance: RIVAROXABAN
     Indication: ATRIAL FIBRILLATION
     Route: 048
     Dates: start: 201304
  9. OMEPRAZOLE. [Concomitant]
     Active Substance: OMEPRAZOLE
     Indication: GASTROOESOPHAGEAL REFLUX DISEASE
     Route: 048

REACTIONS (2)
  - Contusion [Not Recovered/Not Resolved]
  - Gout [Unknown]

NARRATIVE: CASE EVENT DATE: 201306
